FAERS Safety Report 17354307 (Version 1)
Quarter: 2020Q1

REPORT INFORMATION
  Report Type: Spontaneous
  Country: AE (occurrence: AE)
  Receive Date: 20200131
  Receipt Date: 20200131
  Transmission Date: 20200409
  Serious: Yes (Life-Threatening, Hospitalization, Other)
  Sender: FDA-Public Use
  Company Number: AE-MYLANLABS-2020M1011519

PATIENT
  Age: 88 Year
  Sex: Male
  Weight: 88 kg

DRUGS (1)
  1. FONDAPARINUX [Suspect]
     Active Substance: FONDAPARINUX
     Indication: THROMBOSIS PROPHYLAXIS
     Dosage: 2.5 MILLIGRAM, QD

REACTIONS (3)
  - Product use issue [Unknown]
  - Tracheal haemorrhage [Recovered/Resolved]
  - Haemorrhage [Recovered/Resolved]
